FAERS Safety Report 9379258 (Version 1)
Quarter: 2013Q3

REPORT INFORMATION
  Report Type: Spontaneous
  Country: ES (occurrence: ES)
  Receive Date: 20130702
  Receipt Date: 20130702
  Transmission Date: 20140515
  Serious: Yes (Death)
  Sender: FDA-Public Use
  Company Number: ES-MPIJNJ-2013-05114

PATIENT
  Sex: 0

DRUGS (1)
  1. VELCADE [Suspect]
     Indication: AMYLOIDOSIS
     Route: 065

REACTIONS (2)
  - Transplant rejection [Fatal]
  - Off label use [Unknown]
